FAERS Safety Report 18436554 (Version 1)
Quarter: 2020Q4

REPORT INFORMATION
  Report Type: Spontaneous
  Country: US (occurrence: US)
  Receive Date: 20201028
  Receipt Date: 20201028
  Transmission Date: 20210114
  Serious: Yes (Life-Threatening)
  Sender: FDA-Public Use
  Company Number: None

PATIENT
  Age: 28 Year
  Sex: Female
  Weight: 85 kg

DRUGS (1)
  1. ORITAVANCIN. [Suspect]
     Active Substance: ORITAVANCIN
     Dates: start: 20200616, end: 20200714

REACTIONS (3)
  - Vomiting [None]
  - Feeling hot [None]
  - Chills [None]

NARRATIVE: CASE EVENT DATE: 20200714
